FAERS Safety Report 6380382-4 (Version None)
Quarter: 2009Q3

REPORT INFORMATION
  Report Type: 
  Country: None (occurrence: None)
  Receive Date: 20090929
  Receipt Date: 20090925
  Transmission Date: 20100115
  Serious: Yes (Hospitalization)
  Sender: FDA-Public Use
  Company Number: DE-WYE-G04114309

PATIENT
  Sex: Female

DRUGS (8)
  1. TREVILOR RETARD [Suspect]
     Indication: DEPRESSION
     Route: 048
     Dates: start: 20090401, end: 20090801
  2. TREVILOR RETARD [Suspect]
     Indication: BIPOLAR II DISORDER
  3. TRIARESE [Concomitant]
     Route: 048
  4. MIRTAZAPINE [Concomitant]
     Route: 048
  5. XIMOVAN [Concomitant]
     Route: 048
  6. DIPIPERON [Concomitant]
     Route: 048
  7. RISPERDAL [Concomitant]
     Route: 048
  8. L-THYROXIN [Concomitant]
     Route: 048

REACTIONS (3)
  - APHASIA [None]
  - CEREBRAL INFARCTION [None]
  - HYPERTENSIVE CRISIS [None]
